FAERS Safety Report 8262812 (Version 2)
Quarter: 2013Q1

REPORT INFORMATION
  Report Type: Spontaneous
  Country: US (occurrence: US)
  Receive Date: 20111124
  Receipt Date: 20130218
  Transmission Date: 20140127
  Serious: Yes (Hospitalization, Other)
  Sender: FDA-Public Use
  Company Number: US-ROCHE-1015933

PATIENT
  Age: 14 Year
  Sex: Male
  Weight: 77.18 kg

DRUGS (6)
  1. ACCUTANE [Suspect]
     Indication: ACNE
     Route: 048
     Dates: start: 20010608, end: 20011219
  2. ACCUTANE [Suspect]
     Route: 048
     Dates: start: 20020308, end: 20020408
  3. ALLEGRA [Concomitant]
  4. TAZORAC [Concomitant]
  5. SPECTAZOLE [Concomitant]
  6. MINOCIN [Concomitant]

REACTIONS (11)
  - Crohn^s disease [Unknown]
  - Colitis ulcerative [Unknown]
  - Inflammatory bowel disease [Unknown]
  - Injury [Unknown]
  - Depression [Not Recovered/Not Resolved]
  - Irritable bowel syndrome [Unknown]
  - Dry skin [Unknown]
  - Rash [Unknown]
  - Thyroiditis [Unknown]
  - Eczema [Unknown]
  - Tinea pedis [Unknown]
